FAERS Safety Report 13521532 (Version 1)
Quarter: 2017Q2

REPORT INFORMATION
  Report Type: Report from Study
  Country: US (occurrence: US)
  Receive Date: 20170508
  Receipt Date: 20170508
  Transmission Date: 20170830
  Serious: Yes (Other)
  Sender: FDA-Public Use
  Company Number: US-ROCHE-708706

PATIENT
  Sex: Female

DRUGS (2)
  1. CAPECITABINE. [Suspect]
     Active Substance: CAPECITABINE
     Indication: BREAST CANCER METASTATIC
     Route: 048
  2. RAD001 [Suspect]
     Active Substance: EVEROLIMUS
     Indication: BREAST CANCER METASTATIC
     Dosage: DOSAGE: 2.5 MG EVERY OTHER DAY, 2.5 MG DAILY AND 5 MG DAILY
     Route: 048

REACTIONS (14)
  - Lipids increased [Unknown]
  - Mucosal inflammation [Unknown]
  - Febrile neutropenia [Unknown]
  - Neutropenia [Unknown]
  - Stomatitis [Unknown]
  - Anaemia [Unknown]
  - Hyperglycaemia [Unknown]
  - Hypercholesterolaemia [Unknown]
  - Thrombocytopenia [Unknown]
  - Dehydration [Unknown]
  - Diarrhoea [Unknown]
  - Decreased appetite [Unknown]
  - Fatigue [Unknown]
  - Pain [Unknown]
